FAERS Safety Report 7367266-X (Version None)
Quarter: 2011Q1

REPORT INFORMATION
  Report Type: 
  Country: None (occurrence: None)
  Receive Date: 20110322
  Receipt Date: 20110311
  Transmission Date: 20110831
  Serious: Yes (Death, Life-Threatening, Other)
  Sender: FDA-Public Use
  Company Number: US-PFIZER INC-2006044140

PATIENT
  Sex: Female

DRUGS (4)
  1. NEURONTIN [Suspect]
     Indication: PAIN
     Dates: start: 20000101, end: 20020423
  2. NEURONTIN [Suspect]
     Indication: AFFECTIVE DISORDER
  3. TRAZODONE [Concomitant]
  4. NEURONTIN [Suspect]
     Indication: ANXIETY

REACTIONS (11)
  - ANXIETY [None]
  - AMNESIA [None]
  - AGITATION [None]
  - SUICIDAL IDEATION [None]
  - DEPRESSION [None]
  - SLEEP DISORDER [None]
  - SELF INJURIOUS BEHAVIOUR [None]
  - DECREASED APPETITE [None]
  - COMPLETED SUICIDE [None]
  - DRUG INEFFECTIVE [None]
  - IRRITABILITY [None]
